FAERS Safety Report 6027119-6 (Version None)
Quarter: 2009Q1

REPORT INFORMATION
  Report Type: 
  Country: None (occurrence: None)
  Receive Date: 20090102
  Receipt Date: 20090102
  Transmission Date: 20090719
  Serious: No
  Sender: FDA-Public Use
  Company Number: None

PATIENT
  Age: 73 Year
  Sex: Female
  Weight: 58.9676 kg

DRUGS (1)
  1. FOSAMAX [Suspect]
     Indication: OSTEOPOROSIS PROPHYLAXIS
     Dosage: 1X WEEKLY PO
     Route: 048
     Dates: start: 20060220, end: 20060520

REACTIONS (3)
  - DYSPHAGIA [None]
  - FOREIGN BODY TRAUMA [None]
  - GASTROOESOPHAGEAL REFLUX DISEASE [None]
